FAERS Safety Report 9280915 (Version 1)
Quarter: 2013Q2

REPORT INFORMATION
  Report Type: Spontaneous
  Country: IT (occurrence: IT)
  Receive Date: 20130509
  Receipt Date: 20130509
  Transmission Date: 20140414
  Serious: Yes (Other)
  Sender: FDA-Public Use
  Company Number: IT-JNJFOC-20130416906

PATIENT
  Age: 9 Year
  Sex: Male

DRUGS (8)
  1. RISPERDAL [Suspect]
     Indication: MENTAL RETARDATION
     Route: 048
  2. RISPERDAL [Suspect]
     Indication: MENTAL RETARDATION
     Route: 048
  3. RISPERDAL [Suspect]
     Indication: MENTAL RETARDATION
     Route: 048
     Dates: start: 20121126
  4. RISPERDAL [Suspect]
     Indication: MENTAL RETARDATION
     Route: 048
     Dates: start: 20121105
  5. RISPERDAL [Suspect]
     Indication: MENTAL RETARDATION
     Route: 048
     Dates: start: 20120914
  6. RISPERDAL [Suspect]
     Indication: MENTAL RETARDATION
     Route: 048
     Dates: start: 20110328, end: 20120518
  7. DEPAKIN [Concomitant]
     Route: 065
  8. DEPAKIN [Concomitant]
     Route: 065

REACTIONS (4)
  - Psychomotor hyperactivity [Not Recovered/Not Resolved]
  - Aggression [Recovering/Resolving]
  - Hyperphagia [Unknown]
  - Treatment noncompliance [Unknown]
